FAERS Safety Report 21745472 (Version 1)
Quarter: 2022Q4

REPORT INFORMATION
  Report Type: Spontaneous
  Country: CN (occurrence: CN)
  Receive Date: 20221219
  Receipt Date: 20221219
  Transmission Date: 20230112
  Serious: Yes (Hospitalization, Other)
  Sender: FDA-Public Use
  Company Number: None

PATIENT
  Age: 58 Year
  Sex: Female

DRUGS (8)
  1. MYCOPHENOLATE MOFETIL [Suspect]
     Active Substance: MYCOPHENOLATE MOFETIL
     Indication: Lupus nephritis
     Dosage: 0.75 MILLIGRAM, EVERY 1 DAY
     Route: 065
     Dates: start: 2020, end: 2020
  2. MYCOPHENOLATE MOFETIL [Suspect]
     Active Substance: MYCOPHENOLATE MOFETIL
     Indication: Systemic lupus erythematosus
     Dosage: 0.75 MILLIGRAM, EVERY 12 HOUR
     Route: 065
     Dates: start: 2018
  3. CYCLOPHOSPHAMIDE [Suspect]
     Active Substance: CYCLOPHOSPHAMIDE
     Indication: Systemic lupus erythematosus
     Dosage: 0.2 GRAM, EVERY 1 DAY
     Route: 065
  4. METHYLPREDNISOLONE [Suspect]
     Active Substance: METHYLPREDNISOLONE
     Indication: Systemic lupus erythematosus
     Dosage: 40 MILLIGRAM, EVERY 1 DAY
     Route: 042
     Dates: start: 2018
  5. METHYLPREDNISOLONE [Suspect]
     Active Substance: METHYLPREDNISOLONE
     Indication: Lupus nephritis
     Dosage: 500 MILLIGRAM, EVERY 1 DAY
     Route: 042
     Dates: start: 201707
  6. METHYLPREDNISOLONE [Suspect]
     Active Substance: METHYLPREDNISOLONE
     Dosage: 40 MILLIGRAM, EVERY 1 DAY
     Route: 042
  7. PREDNISONE [Suspect]
     Active Substance: PREDNISONE
     Indication: Lupus nephritis
     Dosage: 40 MILLIGRAM, EVERY 1 DAY
     Route: 065
     Dates: start: 2018
  8. PREDNISONE [Suspect]
     Active Substance: PREDNISONE
     Indication: Systemic lupus erythematosus
     Dosage: 5 MILLIGRAM, EVERY 1 DAY
     Route: 065
     Dates: start: 2020, end: 2020

REACTIONS (10)
  - Pneumonia bacterial [Recovering/Resolving]
  - Thrombosis [Recovering/Resolving]
  - Aspergilloma [Recovering/Resolving]
  - Bronchiectasis [Unknown]
  - Treatment noncompliance [Unknown]
  - Mania [Unknown]
  - Insomnia [Unknown]
  - Nausea [Unknown]
  - Vomiting [Unknown]
  - Drug intolerance [Unknown]

NARRATIVE: CASE EVENT DATE: 20180801
